FAERS Safety Report 5524987-9 (Version None)
Quarter: 2007Q4

REPORT INFORMATION
  Report Type: 
  Country: None (occurrence: None)
  Receive Date: 20071119
  Receipt Date: 20071101
  Transmission Date: 20080405
  Serious: Yes (Death, Life-Threatening, Other)
  Sender: FDA-Public Use
  Company Number: 200719777GDDC

PATIENT
  Age: 71 Year
  Sex: Male
  Weight: 55 kg

DRUGS (2)
  1. MITOXANTRONE [Suspect]
     Indication: PROSTATE CANCER
     Dosage: 20 MG Q3W IV
     Route: 042
     Dates: start: 20070910, end: 20070910
  2. PREDNISONE TAB [Suspect]
     Indication: PROSTATE CANCER
     Dosage: 10 MG BID PO
     Route: 048
     Dates: start: 20070731, end: 20070910

REACTIONS (5)
  - DISCOMFORT [None]
  - NEUTROPENIC INFECTION [None]
  - PULMONARY FIBROSIS [None]
  - RESPIRATORY FAILURE [None]
  - WHITE BLOOD CELL COUNT DECREASED [None]
